FAERS Safety Report 11523203 (Version 1)
Quarter: 2015Q3

REPORT INFORMATION
  Report Type: Report from Study
  Country: US (occurrence: US)
  Receive Date: 20150918
  Receipt Date: 20150918
  Transmission Date: 20151125
  Serious: Yes (Other)
  Sender: FDA-Public Use
  Company Number: US-PURDUE-USA-2015-0121829

PATIENT
  Age: 56 Year
  Sex: Female

DRUGS (5)
  1. OXYCONTIN [Suspect]
     Active Substance: OXYCODONE HYDROCHLORIDE
     Dosage: UNK
     Route: 048
     Dates: start: 201005
  2. METHADONE [Concomitant]
     Active Substance: METHADONE HYDROCHLORIDE
     Indication: PRODUCT USED FOR UNKNOWN INDICATION
     Dosage: 10 MG, UNK
     Route: 048
  3. OXYCONTIN [Suspect]
     Active Substance: OXYCODONE HYDROCHLORIDE
     Dosage: 80 MG, BID
     Route: 048
     Dates: start: 20120209
  4. OXYCONTIN [Suspect]
     Active Substance: OXYCODONE HYDROCHLORIDE
     Indication: ARTHRITIS
     Dosage: 80 MG, Q12H
     Route: 048
  5. OXYCONTIN [Suspect]
     Active Substance: OXYCODONE HYDROCHLORIDE
     Indication: BONE PAIN
     Dosage: 40 MG, Q12H
     Route: 048

REACTIONS (15)
  - Drug withdrawal syndrome [Unknown]
  - Hepatitis C [Unknown]
  - Ear infection [Unknown]
  - Inadequate analgesia [Unknown]
  - Malaise [Unknown]
  - Drug dose omission [Unknown]
  - Pain [Not Recovered/Not Resolved]
  - Feeling of body temperature change [Unknown]
  - Gastrooesophageal reflux disease [Unknown]
  - Vomiting [Unknown]
  - Diarrhoea [Unknown]
  - Nausea [Unknown]
  - Feeling abnormal [Unknown]
  - Memory impairment [Unknown]
  - Drug effect decreased [Unknown]

NARRATIVE: CASE EVENT DATE: 201503
